FAERS Safety Report 11971042 (Version 2)
Quarter: 2017Q1

REPORT INFORMATION
  Report Type: Spontaneous
  Country: US (occurrence: US)
  Receive Date: 20160128
  Receipt Date: 20170324
  Transmission Date: 20170428
  Serious: Yes (Hospitalization, Other)
  Sender: FDA-Public Use
  Company Number: US-ELI_LILLY_AND_COMPANY-US201601009750

PATIENT
  Age: 37 Year
  Sex: Male
  Weight: 91.6 kg

DRUGS (3)
  1. CYMBALTA [Suspect]
     Active Substance: DULOXETINE HYDROCHLORIDE
     Indication: PAIN
     Dosage: UNK, UNKNOWN
     Route: 065
  2. CYMBALTA [Suspect]
     Active Substance: DULOXETINE HYDROCHLORIDE
     Indication: DEPRESSION
  3. TARADYL [Suspect]
     Active Substance: KETOROLAC\KETOROLAC TROMETHAMINE

REACTIONS (15)
  - Nausea [Unknown]
  - Amnesia [Unknown]
  - Anxiety [Unknown]
  - Seizure [Unknown]
  - Sleep disorder [Unknown]
  - Headache [Unknown]
  - Withdrawal syndrome [Unknown]
  - Vertigo [Unknown]
  - Paraesthesia [Unknown]
  - Dizziness [Unknown]
  - Tremor [Unknown]
  - Diarrhoea [Unknown]
  - Hyperhidrosis [Unknown]
  - Insomnia [Unknown]
  - Affect lability [Unknown]

NARRATIVE: CASE EVENT DATE: 20140108
